FAERS Safety Report 12124077 (Version 1)
Quarter: 2016Q1

REPORT INFORMATION
  Report Type: Report from Study
  Country: US (occurrence: US)
  Receive Date: 20160229
  Receipt Date: 20160229
  Transmission Date: 20160526
  Serious: Yes (Death, Hospitalization, Other)
  Sender: FDA-Public Use
  Company Number: US-BAYER-2015-374246

PATIENT
  Age: 78 Year
  Sex: Male
  Weight: 86.2 kg

DRUGS (7)
  1. METOPROLOL. [Concomitant]
     Active Substance: METOPROLOL
  2. STIVARGA [Suspect]
     Active Substance: REGORAFENIB
     Indication: RECTAL CANCER METASTATIC
  3. LISINOPRIL. [Concomitant]
     Active Substance: LISINOPRIL
  4. STIVARGA [Suspect]
     Active Substance: REGORAFENIB
     Indication: COLON CANCER
     Dosage: 160 MG, QD (4 TABLETS FROM 1 TO 21 DAYS OF 28 DAYS CYCLE)
     Route: 048
     Dates: start: 20150623, end: 20150630
  5. WARFARIN [Concomitant]
     Active Substance: WARFARIN
  6. COUMADIN [Concomitant]
     Active Substance: WARFARIN SODIUM
     Dosage: UNK
     Route: 042
     Dates: start: 20150630, end: 20150702
  7. HYDROCHLOROTHIAZIDE. [Concomitant]
     Active Substance: HYDROCHLOROTHIAZIDE

REACTIONS (11)
  - Hepatotoxicity [Recovering/Resolving]
  - Weight decreased [Recovering/Resolving]
  - Decreased appetite [Recovering/Resolving]
  - Bladder dilatation [None]
  - Ascites [None]
  - Biliary dilatation [None]
  - Fatigue [Recovering/Resolving]
  - Colon cancer [Fatal]
  - Asthenia [Recovering/Resolving]
  - Coagulopathy [None]
  - Blood bilirubin increased [Recovering/Resolving]

NARRATIVE: CASE EVENT DATE: 20150630
